FAERS Safety Report 4394086-0 (Version None)
Quarter: 2004Q3

REPORT INFORMATION
  Report Type: 
  Country: None (occurrence: None)
  Receive Date: 20040708
  Receipt Date: 20040708
  Transmission Date: 20050211
  Serious: Yes (Hospitalization)
  Sender: FDA-Public Use
  Company Number: None

PATIENT
  Age: 42 Year
  Sex: Female
  Weight: 74.3899 kg

DRUGS (11)
  1. DOCETAXEL [Suspect]
     Indication: PANCREATIC CARCINOMA
     Dosage: 35 MG/M2 IV WKLY D1-D2
     Dates: start: 20040412, end: 20040616
  2. ATENOLOL [Concomitant]
  3. FERREX [Concomitant]
  4. LOVENOX [Concomitant]
  5. LIPRAN [Concomitant]
  6. LOMOTIL [Concomitant]
  7. ACIDOPHILLUS [Concomitant]
  8. CENTRUM [Concomitant]
  9. INSULIN [Concomitant]
  10. FLAGYL [Concomitant]
  11. LEVAQUIN [Concomitant]

REACTIONS (1)
  - PERIANAL ABSCESS [None]
